FAERS Safety Report 15209344 (Version 2)
Quarter: 2018Q3

REPORT INFORMATION
  Report Type: Report from Study
  Country: JP (occurrence: JP)
  Receive Date: 20180727
  Receipt Date: 20180816
  Transmission Date: 20181010
  Serious: Yes (Death)
  Sender: FDA-Public Use
  Company Number: JP-PFIZER INC-2018303453

PATIENT
  Sex: Male

DRUGS (16)
  1. IFOSFAMIDE. [Suspect]
     Active Substance: IFOSFAMIDE
     Indication: TESTICULAR CANCER METASTATIC
     Dosage: UNK , CYCLIC (4 COURSES)
  2. BLEOMYCIN [Suspect]
     Active Substance: BLEOMYCIN SULFATE
     Indication: TESTICULAR CANCER METASTATIC
     Dosage: UNK, CYCLIC (2 COURSES)
  3. CISPLATIN. [Suspect]
     Active Substance: CISPLATIN
     Dosage: UNK, CYCLIC (1 COURSE)
  4. PACLITAXEL. [Suspect]
     Active Substance: PACLITAXEL
     Dosage: UNK, CYCLIC (1 COURSE)
  5. IRINOTECAN HCL [Suspect]
     Active Substance: IRINOTECAN HYDROCHLORIDE
     Indication: TESTICULAR CANCER METASTATIC
     Dosage: UNK, CYCLIC (9 COURSES)
  6. CISPLATIN. [Suspect]
     Active Substance: CISPLATIN
     Indication: TESTICULAR CANCER METASTATIC
     Dosage: UNK, CYCLIC (2 COURSES)
  7. CISPLATIN. [Suspect]
     Active Substance: CISPLATIN
     Dosage: UNK, CYCLIC (9 COURSES)
  8. NEDAPLATIN [Suspect]
     Active Substance: NEDAPLATIN
     Dosage: UNK, CYCLIC (1 COURSES)
  9. NEDAPLATIN [Suspect]
     Active Substance: NEDAPLATIN
     Indication: TESTICULAR CANCER METASTATIC
     Dosage: UNK, CYCLIC (2 COURSES)
  10. PACLITAXEL. [Suspect]
     Active Substance: PACLITAXEL
     Indication: TESTICULAR CANCER METASTATIC
     Dosage: UNK, CYCLIC (2 COURSES)
  11. ETOPOSIDE. [Suspect]
     Active Substance: ETOPOSIDE
     Dosage: UNK, CYCLIC (4 COURSES)
  12. CISPLATIN. [Suspect]
     Active Substance: CISPLATIN
     Dosage: UNK, CYCLIC (4 COURSES)
  13. IRINOTECAN HCL [Suspect]
     Active Substance: IRINOTECAN HYDROCHLORIDE
     Dosage: UNK, CYCLIC (1 COURSE)
  14. GEMCITABINE HYDROCHLORIDE. [Suspect]
     Active Substance: GEMCITABINE HYDROCHLORIDE
     Indication: TESTICULAR CANCER METASTATIC
     Dosage: UNK, CYCLIC (1 COURSE)
  15. ETOPOSIDE. [Suspect]
     Active Substance: ETOPOSIDE
     Indication: TESTICULAR CANCER METASTATIC
     Dosage: UNK, CYCLIC (2 COURSES)
  16. IFOSFAMIDE. [Suspect]
     Active Substance: IFOSFAMIDE
     Dosage: UNK , CYCLIC (2 COURSES)

REACTIONS (2)
  - Myelodysplastic syndrome [Fatal]
  - Second primary malignancy [Fatal]
